FAERS Safety Report 6223157-9 (Version None)
Quarter: 2009Q2

REPORT INFORMATION
  Report Type: 
  Country: None (occurrence: None)
  Receive Date: 20090611
  Receipt Date: 20090608
  Transmission Date: 20091009
  Serious: Yes (Death, Hospitalization, Other)
  Sender: FDA-Public Use
  Company Number: PHEH2009US05482

PATIENT
  Sex: Male
  Weight: 76.93 kg

DRUGS (23)
  1. EXJADE [Suspect]
     Indication: IRON OVERLOAD
     Dosage: 1500 MG, QD
     Dates: start: 20080721
  2. BISACODYL [Concomitant]
     Dosage: PRN
  3. BISACODYL [Concomitant]
     Dosage: UNK
  4. FLOMAX [Suspect]
     Dosage: 04. UNK, UNK
  5. FLOMAX [Concomitant]
     Dosage: 0.4 MG DAILY
  6. FUROSEMIDE [Concomitant]
     Dosage: 20 MG DAILY
  7. MIRALAX [Concomitant]
     Dosage: 17 GM DAILY
  8. DIGOXIN [Concomitant]
     Dosage: 0.125 MG DAILY
  9. POTASSIUM CHLORIDE [Concomitant]
     Dosage: 20 MEG BID
  10. DOCUSATE [Concomitant]
     Dosage: 100 MG DAILY
  11. DUONEB [Concomitant]
     Dosage: QID
  12. LORAZEPAM [Concomitant]
     Dosage: 0.5 MG BID
  13. WARFARIN SODIUM [Concomitant]
     Dosage: 5 MG DAILY
  14. CEFTIN [Concomitant]
     Dosage: 250 BID X 7 DAYS
  15. NITROGLYCERIN ^PHARMACIA + UPJOHN^ [Concomitant]
     Dosage: PRN
     Route: 060
  16. OXYCODONE HYDROCHLORIDE W/PARACETAMOL [Concomitant]
     Dosage: 3/325, 1 Q 6 HR PRN
  17. CELEXA [Concomitant]
     Dosage: 20 MG DAILY
  18. MILK OF MAGNESIA TAB [Concomitant]
     Dosage: BID PRN
  19. NEXIUM [Concomitant]
     Dosage: 40 MG DAILY
  20. ACETAMINOPHEN [Concomitant]
     Dosage: 650 MG Q 6HR PRN
  21. CALCIUM CARBONATE [Concomitant]
  22. ERGOCALCIFEROL [Concomitant]
     Dosage: 50,000 UNITS MONTHLY
  23. DOCUSATE SODIUM W/SENNA [Concomitant]
     Dosage: 1-2 TABLETS TID PRN

REACTIONS (15)
  - ASCITES [None]
  - BASAL CELL CARCINOMA [None]
  - CAROTID ARTERY STENOSIS [None]
  - CHILLS [None]
  - DYSPHAGIA [None]
  - GASTRITIS [None]
  - GASTROOESOPHAGEAL REFLUX DISEASE [None]
  - INTERNATIONAL NORMALISED RATIO DECREASED [None]
  - MIGRAINE [None]
  - MYELODYSPLASTIC SYNDROME [None]
  - OEDEMA [None]
  - PNEUMONIA ASPIRATION [None]
  - PYREXIA [None]
  - REGURGITATION [None]
  - ROSACEA [None]
